FAERS Safety Report 6941183-9 (Version None)
Quarter: 2010Q3

REPORT INFORMATION
  Report Type: 
  Country: None (occurrence: None)
  Receive Date: 20100825
  Receipt Date: 20100615
  Transmission Date: 20110219
  Serious: No
  Sender: FDA-Public Use
  Company Number: US-BRISTOL-MYERS SQUIBB COMPANY-15149024

PATIENT
  Age: 68 Year
  Sex: Female

DRUGS (2)
  1. ONGLYZA [Suspect]
  2. METFORMIN HCL [Suspect]

REACTIONS (1)
  - GASTROINTESTINAL DISORDER [None]
